FAERS Safety Report 5239794-4 (Version None)
Quarter: 2007Q1

REPORT INFORMATION
  Report Type: 
  Country: None (occurrence: None)
  Receive Date: 20070212
  Receipt Date: 20070122
  Transmission Date: 20070707
  Serious: Yes (Other)
  Sender: FDA-Public Use
  Company Number: CA-GDP-0714281

PATIENT
  Age: 21 Year

DRUGS (1)
  1. DIFFERIN [Suspect]
     Dosage: A FEW MONTHS

REACTIONS (1)
  - THYROID CANCER [None]
